FAERS Safety Report 8575916-5 (Version None)
Quarter: 2012Q3

REPORT INFORMATION
  Report Type: 
  Country: None (occurrence: None)
  Receive Date: 20120807
  Receipt Date: 20120206
  Transmission Date: 20120928
  Serious: Yes (Death, Hospitalization, Other)
  Sender: FDA-Public Use
  Company Number: DE-CELGENEUS-062-50794-12061623

PATIENT
  Age: 59 Year
  Sex: Female
  Weight: 67 kg

DRUGS (3)
  1. VIDAZA [Suspect]
     Route: 058
     Dates: start: 20110711, end: 20110720
  2. NEUPOGEN [Concomitant]
     Route: 065
  3. CIPROFLOXACIN [Concomitant]
     Dosage: 1000 DOSAGE FORMS
     Route: 065

REACTIONS (9)
  - MYELODYSPLASTIC SYNDROME [None]
  - GRANULOCYTES ABNORMAL [None]
  - WHITE BLOOD CELL DISORDER [None]
  - PLATELET DISORDER [None]
  - SEPSIS [None]
  - INFECTION [None]
  - HAEMOGLOBIN ABNORMAL [None]
  - PANCYTOPENIA [None]
  - FATIGUE [None]
